FAERS Safety Report 17824780 (Version 1)
Quarter: 2020Q2

REPORT INFORMATION
  Report Type: Spontaneous
  Country: US (occurrence: US)
  Receive Date: 20200526
  Receipt Date: 20200526
  Transmission Date: 20200714
  Serious: No
  Sender: FDA-Public Use
  Company Number: US-TEVA-2020-US-1240954

PATIENT
  Sex: Female

DRUGS (1)
  1. NIZATIDINE ACTAVIS [Suspect]
     Active Substance: NIZATIDINE
     Route: 065

REACTIONS (2)
  - Product substitution issue [Unknown]
  - Gastrooesophageal reflux disease [Unknown]
